FAERS Safety Report 9506344 (Version 1)
Quarter: 2013Q1

REPORT INFORMATION
  Report Type: Spontaneous
  Country: US (occurrence: None)
  Receive Date: 20130301
  Receipt Date: 20130301
  Transmission Date: 20140127
  Serious: Yes (Hospitalization)
  Sender: FDA-Public Use
  Company Number: RB-40282-2012

PATIENT
  Sex: Female

DRUGS (1)
  1. SUBOXONE [Suspect]
     Indication: DRUG DEPENDENCE
     Route: 060
     Dates: start: 200711, end: 201010

REACTIONS (7)
  - Nausea [None]
  - Wrong technique in drug usage process [None]
  - Hepatitis acute [None]
  - Abdominal discomfort [None]
  - Jaundice [None]
  - Hepatomegaly [None]
  - Splenomegaly [None]
